FAERS Safety Report 22299105 (Version 8)
Quarter: 2024Q1

REPORT INFORMATION
  Report Type: Report from Study
  Country: US (occurrence: US)
  Receive Date: 20230509
  Receipt Date: 20240319
  Transmission Date: 20240410
  Serious: Yes (Hospitalization, Other)
  Sender: FDA-Public Use
  Company Number: US-TAKEDA-US201924004

PATIENT
  Age: 44 Year
  Sex: Female

DRUGS (24)
  1. TEDUGLUTIDE [Suspect]
     Active Substance: TEDUGLUTIDE
     Indication: Short-bowel syndrome
     Dosage: 2.56 MILLIGRAM, QD
     Route: 058
     Dates: start: 20181114
  2. TEDUGLUTIDE [Suspect]
     Active Substance: TEDUGLUTIDE
     Indication: Short-bowel syndrome
     Dosage: 2.56 MILLIGRAM, QD
     Route: 058
     Dates: start: 20181114
  3. TEDUGLUTIDE [Suspect]
     Active Substance: TEDUGLUTIDE
     Indication: Short-bowel syndrome
     Dosage: 2.56 MILLIGRAM, QD
     Route: 058
     Dates: start: 20181114
  4. TEDUGLUTIDE [Suspect]
     Active Substance: TEDUGLUTIDE
     Indication: Short-bowel syndrome
     Dosage: 2.56 MILLIGRAM, QD
     Route: 058
     Dates: start: 20181114
  5. TEDUGLUTIDE [Suspect]
     Active Substance: TEDUGLUTIDE
     Dosage: 0.31 MILLILITER, QD
     Route: 058
     Dates: start: 20230328
  6. TEDUGLUTIDE [Suspect]
     Active Substance: TEDUGLUTIDE
     Dosage: 0.31 MILLILITER, QD
     Route: 058
     Dates: start: 20230328
  7. TEDUGLUTIDE [Suspect]
     Active Substance: TEDUGLUTIDE
     Dosage: 0.31 MILLILITER, QD
     Route: 058
     Dates: start: 20230328
  8. TEDUGLUTIDE [Suspect]
     Active Substance: TEDUGLUTIDE
     Dosage: 0.31 MILLILITER, QD
     Route: 058
     Dates: start: 20230328
  9. TEDUGLUTIDE [Suspect]
     Active Substance: TEDUGLUTIDE
     Dosage: 0.31 MILLILITER, QD
     Route: 058
     Dates: start: 20230406
  10. TEDUGLUTIDE [Suspect]
     Active Substance: TEDUGLUTIDE
     Dosage: 0.31 MILLILITER, QD
     Route: 058
     Dates: start: 20230406
  11. TEDUGLUTIDE [Suspect]
     Active Substance: TEDUGLUTIDE
     Dosage: 0.31 MILLILITER, QD
     Route: 058
     Dates: start: 20230406
  12. TEDUGLUTIDE [Suspect]
     Active Substance: TEDUGLUTIDE
     Dosage: 0.31 MILLILITER, QD
     Route: 058
     Dates: start: 20230406
  13. TEDUGLUTIDE [Suspect]
     Active Substance: TEDUGLUTIDE
     Dosage: 0.31 MILLILITER, QD
     Route: 058
  14. TEDUGLUTIDE [Suspect]
     Active Substance: TEDUGLUTIDE
     Dosage: 0.31 MILLILITER, QD
     Route: 058
  15. TEDUGLUTIDE [Suspect]
     Active Substance: TEDUGLUTIDE
     Dosage: 0.31 MILLILITER, QD
     Route: 058
  16. TEDUGLUTIDE [Suspect]
     Active Substance: TEDUGLUTIDE
     Dosage: 0.31 MILLILITER, QD
     Route: 058
  17. TEDUGLUTIDE [Suspect]
     Active Substance: TEDUGLUTIDE
     Dosage: 0.3 MILLIGRAM, QD
     Route: 058
     Dates: start: 202304
  18. TEDUGLUTIDE [Suspect]
     Active Substance: TEDUGLUTIDE
     Dosage: 0.3 MILLIGRAM, QD
     Route: 058
     Dates: start: 202304
  19. TEDUGLUTIDE [Suspect]
     Active Substance: TEDUGLUTIDE
     Dosage: 0.3 MILLIGRAM, QD
     Route: 058
     Dates: start: 202304
  20. TEDUGLUTIDE [Suspect]
     Active Substance: TEDUGLUTIDE
     Dosage: 0.3 MILLIGRAM, QD
     Route: 058
     Dates: start: 202304
  21. TEDUGLUTIDE [Suspect]
     Active Substance: TEDUGLUTIDE
     Dosage: 0.31 MILLILITER, QD
     Route: 058
  22. TEDUGLUTIDE [Suspect]
     Active Substance: TEDUGLUTIDE
     Dosage: 0.31 MILLILITER, QD
     Route: 058
  23. TEDUGLUTIDE [Suspect]
     Active Substance: TEDUGLUTIDE
     Dosage: 0.31 MILLILITER, QD
     Route: 058
  24. TEDUGLUTIDE [Suspect]
     Active Substance: TEDUGLUTIDE
     Dosage: 0.31 MILLILITER, QD
     Route: 058

REACTIONS (18)
  - Vascular device infection [Unknown]
  - Pneumonia aspiration [Unknown]
  - Aspiration [Unknown]
  - Nausea [Unknown]
  - Abdominal pain [Unknown]
  - Illness [Unknown]
  - Back disorder [Unknown]
  - Osteoporosis [Unknown]
  - Vitamin D abnormal [Unknown]
  - Blood calcium abnormal [Unknown]
  - Thyroid mass [Unknown]
  - Gastrointestinal disorder [Unknown]
  - Pain [Unknown]
  - Musculoskeletal stiffness [Unknown]
  - Retching [Unknown]
  - Influenza like illness [Unknown]
  - Infection [Unknown]
  - White blood cell count increased [Unknown]

NARRATIVE: CASE EVENT DATE: 20190701
